FAERS Safety Report 9938575 (Version 3)
Quarter: 2015Q1

REPORT INFORMATION
  Report Type: Spontaneous
  Country: US (occurrence: US)
  Receive Date: 20140303
  Receipt Date: 20150119
  Transmission Date: 20150721
  Serious: Yes (Death, Life-Threatening, Hospitalization, Other)
  Sender: FDA-Public Use
  Company Number: US-009507513-1402USA013692

PATIENT
  Sex: Female
  Weight: 108.84 kg

DRUGS (1)
  1. JANUVIA [Suspect]
     Active Substance: SITAGLIPTIN PHOSPHATE
     Indication: TYPE 2 DIABETES MELLITUS
     Dosage: 100 MG, QD
     Route: 048
     Dates: start: 20070604, end: 20130212

REACTIONS (21)
  - Dyslipidaemia [Unknown]
  - Metastases to lymph nodes [Fatal]
  - Metastases to bone [Fatal]
  - Pancreatectomy [Unknown]
  - Abdominal abscess [Unknown]
  - Gallbladder operation [Unknown]
  - Pulmonary vascular disorder [Unknown]
  - Mediastinal mass [Unknown]
  - Bacteraemia [Unknown]
  - Bronchial hyperreactivity [Unknown]
  - Emphysema [Unknown]
  - Metastatic neoplasm [Fatal]
  - Metastases to abdominal cavity [Fatal]
  - Metastases to lung [Unknown]
  - Pancreatic carcinoma stage IV [Fatal]
  - Colectomy [Unknown]
  - Arthritis [Unknown]
  - Hypertension [Unknown]
  - Pyrexia [Unknown]
  - Biopsy [Unknown]
  - Depression [Unknown]

NARRATIVE: CASE EVENT DATE: 201301
